FAERS Safety Report 16747041 (Version 1)
Quarter: 2019Q3

REPORT INFORMATION
  Report Type: Spontaneous
  Country: US (occurrence: US)
  Receive Date: 20190827
  Receipt Date: 20190827
  Transmission Date: 20191005
  Serious: No
  Sender: FDA-Public Use
  Company Number: US-SA-2019SA236627

PATIENT
  Age: 12 Year
  Sex: Male

DRUGS (7)
  1. DUPIXENT [Suspect]
     Active Substance: DUPILUMAB
     Indication: DERMATITIS
     Dosage: 600 MG, 1X
     Route: 058
     Dates: start: 20190808, end: 20190808
  2. CEPHALEXIN [CEFALEXIN] [Concomitant]
     Active Substance: CEPHALEXIN
  3. IPRATROPIUM [Concomitant]
     Active Substance: IPRATROPIUM
  4. ALBUTEROL [SALBUTAMOL] [Concomitant]
     Active Substance: ALBUTEROL
  5. TACROLIMUS. [Concomitant]
     Active Substance: TACROLIMUS
  6. PREDNISONE. [Concomitant]
     Active Substance: PREDNISONE
  7. FLUTICASONE;SALMETEROL [Concomitant]
     Active Substance: FLUTICASONE PROPIONATE\SALMETEROL XINAFOATE

REACTIONS (2)
  - Dermatitis [Not Recovered/Not Resolved]
  - Product use issue [Unknown]

NARRATIVE: CASE EVENT DATE: 201908
